FAERS Safety Report 9916363 (Version 1)
Quarter: 2014Q1

REPORT INFORMATION
  Report Type: Spontaneous
  Country: US (occurrence: None)
  Receive Date: 20140220
  Receipt Date: 20140220
  Transmission Date: 20141002
  Serious: Yes (Hospitalization)
  Sender: FDA-Public Use
  Company Number: None

PATIENT
  Age: 45 Year
  Sex: Female
  Weight: 68.49 kg

DRUGS (2)
  1. VANCOMYCIN [Suspect]
     Indication: CELLULITIS
     Dosage: 1.5 GM ?Q12H?INTECWNOUA
     Route: 042
     Dates: start: 20140125, end: 20140131
  2. VANCOMYCIN [Suspect]
     Indication: POSTOPERATIVE CARE
     Dosage: 1.5 GM ?Q12H?INTECWNOUA
     Route: 042
     Dates: start: 20140125, end: 20140131

REACTIONS (1)
  - Hypersensitivity [None]
